FAERS Safety Report 6316557-X (Version None)
Quarter: 2009Q3

REPORT INFORMATION
  Report Type: 
  Country: None (occurrence: None)
  Receive Date: 20090820
  Receipt Date: 20090810
  Transmission Date: 20100115
  Serious: Yes (Hospitalization, Other)
  Sender: FDA-Public Use
  Company Number: CA-JNJFOC-20090804019

PATIENT
  Sex: Female
  Weight: 75.8 kg

DRUGS (9)
  1. REMICADE [Suspect]
     Route: 042
  2. REMICADE [Suspect]
     Indication: ANKYLOSING SPONDYLITIS
     Route: 042
  3. NAPROSYN [Concomitant]
     Indication: BACK PAIN
     Route: 048
  4. CRESTOR [Concomitant]
     Indication: BLOOD CHOLESTEROL
     Route: 048
  5. VITAMINS NOS [Concomitant]
     Indication: NUTRITIONAL SUPPORT
     Route: 048
  6. PREVACID [Concomitant]
     Indication: DYSPEPSIA
     Route: 048
  7. PRED FORTE [Concomitant]
     Indication: EYE INFLAMMATION
  8. DOCUSATE SODIUM [Concomitant]
     Indication: CONSTIPATION
     Route: 048
  9. NOVO CYCLOPRINE [Concomitant]
     Indication: MUSCLE RELAXANT THERAPY
     Route: 048

REACTIONS (3)
  - FLANK PAIN [None]
  - HAEMORRHAGE [None]
  - NEPHROLITHIASIS [None]
